FAERS Safety Report 14745824 (Version 2)
Quarter: 2019Q1

REPORT INFORMATION
  Report Type: Spontaneous
  Country: IT (occurrence: IT)
  Receive Date: 20180411
  Receipt Date: 20190320
  Transmission Date: 20190417
  Serious: Yes (Hospitalization)
  Sender: FDA-Public Use
  Company Number: IT-AUROBINDO-AUR-APL-2018-019777

PATIENT

DRUGS (4)
  1. TAVOR (LORAZEPAM) [Suspect]
     Active Substance: LORAZEPAM
     Indication: ANXIETY
     Dosage: 1 DOSAGE FORM
     Route: 048
  2. SEROQUEL [Suspect]
     Active Substance: QUETIAPINE FUMARATE
     Indication: BIPOLAR DISORDER
     Dosage: 100 MILLIGRAM
     Route: 048
  3. DULOXETINE. [Suspect]
     Active Substance: DULOXETINE
     Indication: DEPRESSION
     Dosage: 120 MILLIGRAM
     Route: 048
  4. DEPAKIN CHRONO [Suspect]
     Active Substance: VALPROIC ACID
     Indication: BIPOLAR DISORDER
     Dosage: 600 MILLIGRAM
     Route: 048

REACTIONS (6)
  - Confusional state [Recovering/Resolving]
  - Dyskinesia [Recovering/Resolving]
  - Acute kidney injury [Recovering/Resolving]
  - Extrapyramidal disorder [Recovering/Resolving]
  - Mydriasis [Recovering/Resolving]
  - Reduced facial expression [Recovering/Resolving]

NARRATIVE: CASE EVENT DATE: 20171025
